FAERS Safety Report 4308621-1 (Version None)
Quarter: 2004Q1

REPORT INFORMATION
  Report Type: 
  Country: None (occurrence: None)
  Receive Date: 20040301
  Receipt Date: 20040219
  Transmission Date: 20041129
  Serious: No
  Sender: FDA-Public Use
  Company Number: 1-11040206/1-6KMOG

PATIENT
  Age: 9 Year
  Sex: Female
  Weight: 23.9 kg

DRUGS (1)
  1. NIX [Suspect]
     Indication: LICE INFESTATION
     Dosage: HAIR AND SCALP APPLICATION CUTANEOUS
     Route: 003
     Dates: start: 20040208, end: 20040208

REACTIONS (2)
  - EYE REDNESS [None]
  - OCULAR NEOPLASM [None]
